FAERS Safety Report 13251813 (Version 2)
Quarter: 2017Q2

REPORT INFORMATION
  Report Type: Spontaneous
  Country: US (occurrence: US)
  Receive Date: 20170220
  Receipt Date: 20170424
  Transmission Date: 20170830
  Serious: No
  Sender: FDA-Public Use
  Company Number: US-PFIZER INC-2017072238

PATIENT
  Age: 9 Year
  Sex: Female

DRUGS (1)
  1. QUILLIVANT XR [Suspect]
     Active Substance: METHYLPHENIDATE HYDROCHLORIDE
     Indication: ATTENTION DEFICIT/HYPERACTIVITY DISORDER
     Dosage: 6 ML, 1X/DAY, ONCE IN THE MORNING
     Route: 048
     Dates: start: 201601

REACTIONS (4)
  - Poor quality drug administered [Unknown]
  - Retching [Unknown]
  - Vomiting [Unknown]
  - Product physical issue [Unknown]
